FAERS Safety Report 8141707-2 (Version None)
Quarter: 2012Q1

REPORT INFORMATION
  Report Type: 
  Country: None (occurrence: None)
  Receive Date: 20120216
  Receipt Date: 20120208
  Transmission Date: 20120608
  Serious: Yes (Hospitalization)
  Sender: FDA-Public Use
  Company Number: DK-US-EMD SERONO, INC.-E2B_7098093

PATIENT
  Sex: Female
  Weight: 60 kg

DRUGS (4)
  1. VITAMIN TAB [Concomitant]
  2. SUPPLEMENTS [Concomitant]
  3. REBIF [Suspect]
     Indication: MULTIPLE SCLEROSIS
     Route: 058
     Dates: start: 20110414, end: 20110516
  4. EPIDUO [Concomitant]
     Indication: ACNE
     Dates: start: 20110301, end: 20110601

REACTIONS (1)
  - HYPERTRANSAMINASAEMIA [None]
